FAERS Safety Report 16279915 (Version 2)
Quarter: 2020Q1

REPORT INFORMATION
  Report Type: Report from Study
  Country: None (occurrence: US)
  Receive Date: 20190507
  Receipt Date: 20200311
  Transmission Date: 20200409
  Serious: Yes (Death)
  Sender: FDA-Public Use
  Company Number: US-ABBVIE-19S-163-2772068-00

PATIENT
  Sex: Female

DRUGS (2)
  1. DUOPA [Suspect]
     Active Substance: CARBIDOPA\LEVODOPA
     Indication: PARKINSON^S DISEASE
     Dosage: 10-100MG UD, STRENGTH (CMP): 4.63 MG/ML 20 MG/ML
     Route: 050
     Dates: start: 20150917
  2. CARBIDOPA LEVODOPA [Concomitant]
     Active Substance: CARBIDOPA\LEVODOPA
     Indication: PRODUCT USED FOR UNKNOWN INDICATION

REACTIONS (1)
  - Death [Fatal]

NARRATIVE: CASE EVENT DATE: 2019
